FAERS Safety Report 20325663 (Version 1)
Quarter: 2022Q1

REPORT INFORMATION
  Report Type: Other
  Country: None (occurrence: CN)
  Receive Date: 20220112
  Receipt Date: 20220112
  Transmission Date: 20220424
  Serious: Yes (Hospitalization)
  Sender: FDA-Public Use
  Company Number: CN-Caplin Steriles Limited-2123838

PATIENT
  Age: 62 Year
  Sex: Male
  Weight: 90 kg

DRUGS (8)
  1. TRANEXAMIC ACID [Suspect]
     Active Substance: TRANEXAMIC ACID
     Route: 042
  2. HYDROCHLOROTHIAZIDE\IRBESARTAN [Concomitant]
     Active Substance: HYDROCHLOROTHIAZIDE\IRBESARTAN
     Route: 065
  3. LEVAMLODIPINE BESYLATE [Concomitant]
     Active Substance: LEVAMLODIPINE BESYLATE
     Route: 065
  4. ETOMIDATE [Concomitant]
     Active Substance: ETOMIDATE
     Route: 042
  5. FENTANYL [Concomitant]
     Active Substance: FENTANYL
     Route: 042
  6. ROCURONIUM [Concomitant]
     Active Substance: ROCURONIUM BROMIDE
     Route: 042
  7. PROPOFOL [Concomitant]
     Active Substance: PROPOFOL
     Route: 039
  8. REMIFENTANIL [Concomitant]
     Active Substance: REMIFENTANIL
     Route: 039

REACTIONS (6)
  - Circulatory collapse [Recovered/Resolved]
  - Intracardiac thrombus [Recovered/Resolved]
  - Ventricular fibrillation [Recovered/Resolved]
  - Pulmonary embolism [Recovered/Resolved]
  - Haemoperitoneum [Recovered/Resolved]
  - Acute kidney injury [Recovered/Resolved]
